FAERS Safety Report 7078650-6 (Version None)
Quarter: 2010Q4

REPORT INFORMATION
  Report Type: 
  Country: None (occurrence: None)
  Receive Date: 20101102
  Receipt Date: 20101021
  Transmission Date: 20110411
  Serious: Yes (Other)
  Sender: FDA-Public Use
  Company Number: PHFR2010IE00784

PATIENT
  Sex: Male

DRUGS (2)
  1. CLOZARIL [Suspect]
     Indication: SCHIZOPHRENIA
     Dosage: UNK
     Route: 048
     Dates: start: 20090323
  2. CLOZARIL [Suspect]
     Dosage: 75 MG, MANE AND 175 MG NOCTE

REACTIONS (2)
  - ENDODONTIC PROCEDURE [None]
  - JAW CYST [None]
